FAERS Safety Report 10038653 (Version 1)
Quarter: 2014Q1

REPORT INFORMATION
  Report Type: Spontaneous
  Country: US (occurrence: None)
  Receive Date: 20140306
  Receipt Date: 20140306
  Transmission Date: 20141002
  Serious: Yes (Other)
  Sender: FDA-Public Use
  Company Number: 163-21880-12100283

PATIENT
  Age: 57 Year
  Sex: Male
  Weight: 104.33 kg

DRUGS (11)
  1. REVLIMID (LENALIDOMIDE) (10 MILLIGRAM CAPSULES) [Suspect]
     Indication: PLASMA CELL MYELOMA
     Route: 048
     Dates: start: 20110308
  2. SIMVASTATIN (SIMVASTATIN) (TABLETS) [Concomitant]
  3. OMEPRAZOLE (OMEPRAZOLE) [Concomitant]
  4. BABY ASPIRIN (ACETYLSALICYLIC ACID) [Concomitant]
  5. VITAMIN B12 (CYANOCOBALAMIN) [Concomitant]
  6. ALLOPURINOL (ALLOPURINOL) [Concomitant]
  7. FISH OIL (FISH OIL) [Concomitant]
  8. HYDRALAZINE HCL (HYDRALAZINE HYDROCHLORIDE) [Concomitant]
  9. IMDUR (ISOSORBIDE MONONITRATE) (TABLETS) [Concomitant]
  10. METOPROLOL SUCCINATE (METOPROLOL SUCCINATE) [Concomitant]
  11. NEURONTIN (GABAPENTIN) [Concomitant]

REACTIONS (4)
  - Clostridium difficile infection [None]
  - Influenza [None]
  - White blood cell count decreased [None]
  - Full blood count decreased [None]
